FAERS Safety Report 5355438-5 (Version None)
Quarter: 2007Q2

REPORT INFORMATION
  Report Type: 
  Country: None (occurrence: None)
  Receive Date: 20070530
  Receipt Date: 20070117
  Transmission Date: 20071010
  Serious: Yes (Hospitalization)
  Sender: FDA-Public Use
  Company Number: US200609003460

PATIENT
  Age: 34 Year
  Sex: Female
  Weight: 56.7 kg

DRUGS (1)
  1. ZYPREXA [Suspect]
     Indication: DEPRESSION
     Dosage: EACH EVENING
     Dates: start: 19960101, end: 20040101

REACTIONS (3)
  - BLOOD GLUCOSE ABNORMAL [None]
  - CHEST PAIN [None]
  - DIABETES MELLITUS [None]
